FAERS Safety Report 11894178 (Version 2)
Quarter: 2016Q1

REPORT INFORMATION
  Report Type: Spontaneous
  Country: DE (occurrence: DE)
  Receive Date: 20160107
  Receipt Date: 20160129
  Transmission Date: 20160526
  Serious: Yes (Other)
  Sender: FDA-Public Use
  Company Number: DE-BEH-2016057570

PATIENT
  Age: 33 Year
  Sex: Female
  Weight: 84 kg

DRUGS (4)
  1. RHOPHYLAC [Suspect]
     Active Substance: HUMAN RHO(D) IMMUNE GLOBULIN
     Indication: PROPHYLAXIS
     Dates: start: 20151230
  2. L THYROXIN [Concomitant]
     Active Substance: LEVOTHYROXINE SODIUM
     Dosage: START DATE: WITH THE BEGINNING OF PREGNANCY [CA. MID 2015],ALSO REPORTED PRIOR AND DURING PREGNANCY
  3. FOLIC ACID. [Concomitant]
     Active Substance: FOLIC ACID
     Dosage: START DATE: AS THE PREGANCY PROGRESSES
  4. LAMOTRIGINE. [Concomitant]
     Active Substance: LAMOTRIGINE
     Indication: EPILEPSY
     Dosage: DURING PREGNANCY 150MG-0-125MG

REACTIONS (2)
  - Epilepsy [Unknown]
  - Loss of consciousness [Unknown]

NARRATIVE: CASE EVENT DATE: 20160102
